FAERS Safety Report 18325835 (Version 2)
Quarter: 2020Q4

REPORT INFORMATION
  Report Type: Spontaneous
  Country: US (occurrence: US)
  Receive Date: 20200929
  Receipt Date: 20201006
  Transmission Date: 20210113
  Serious: Yes (Hospitalization)
  Sender: FDA-Public Use
  Company Number: US-TEVA-2020-US-1833048

PATIENT
  Age: 60 Year
  Sex: Male

DRUGS (9)
  1. ASPIRIN. [Concomitant]
     Active Substance: ASPIRIN
     Indication: ANTIPLATELET THERAPY
     Route: 054
  2. EPTIFIBATIDE. [Suspect]
     Active Substance: EPTIFIBATIDE
     Indication: ANTIPLATELET THERAPY
     Route: 040
  3. HEPARIN [Concomitant]
     Active Substance: HEPARIN SODIUM
     Indication: ANTIPLATELET THERAPY
     Route: 042
  4. CEFEPIME [Concomitant]
     Active Substance: CEFEPIME HYDROCHLORIDE
     Indication: PNEUMONIA
     Route: 065
  5. EPTIFIBATIDE. [Suspect]
     Active Substance: EPTIFIBATIDE
     Dosage: 2880 UG/KG DAILY; ADMINISTERED OVER 12 HOURS
     Route: 041
  6. HEPARIN [Concomitant]
     Active Substance: HEPARIN SODIUM
     Route: 042
  7. TICAGRELOR. [Concomitant]
     Active Substance: TICAGRELOR
     Indication: ANTIPLATELET THERAPY
     Dosage: ADMINISTERED THROUGH OROGASTRIC TUBE
     Route: 065
  8. VANCOMYCIN [Concomitant]
     Active Substance: VANCOMYCIN
     Indication: PNEUMONIA
     Route: 065
  9. CEFTRIAXONE. [Concomitant]
     Active Substance: CEFTRIAXONE
     Indication: PNEUMONIA
     Route: 065

REACTIONS (3)
  - Deep vein thrombosis [Recovered/Resolved]
  - Immune thrombocytopenia [Recovered/Resolved]
  - Cardiac ventricular thrombosis [Recovered/Resolved]
